FAERS Safety Report 8398477-2 (Version None)
Quarter: 2012Q2

REPORT INFORMATION
  Report Type: 
  Country: None (occurrence: None)
  Receive Date: 20120524
  Receipt Date: 20120508
  Transmission Date: 20120825
  Serious: Yes (Hospitalization)
  Sender: FDA-Public Use
  Company Number: 2012AT000223

PATIENT
  Age: 39 Year
  Sex: Female

DRUGS (1)
  1. ISOSORBIDE DINITRATE [Suspect]
     Indication: PRODUCT USED FOR UNKNOWN INDICATION
     Dosage: 200 MG;PO
     Route: 048

REACTIONS (5)
  - INTENTIONAL OVERDOSE [None]
  - RESPIRATORY DISTRESS [None]
  - HYPOTENSION [None]
  - CYANOSIS [None]
  - METHAEMOGLOBINAEMIA [None]
